FAERS Safety Report 20993645 (Version 1)
Quarter: 2022Q2

REPORT INFORMATION
  Report Type: Spontaneous
  Country: US (occurrence: US)
  Receive Date: 20220622
  Receipt Date: 20220622
  Transmission Date: 20220721
  Serious: No
  Sender: FDA-Public Use
  Company Number: US-CTI BIOPHARMA-2022US02770

PATIENT
  Age: 77 Year
  Sex: Female
  Weight: 51.701 kg

DRUGS (1)
  1. VONJO [Suspect]
     Active Substance: PACRITINIB
     Indication: Essential thrombocythaemia
     Dosage: 200 MILLIGRAM, BID
     Route: 048
     Dates: start: 20220331

REACTIONS (6)
  - Product dose omission issue [Unknown]
  - Fluid imbalance [Unknown]
  - Protein deficiency [Unknown]
  - No adverse event [Unknown]
  - Transfusion [Unknown]
  - White blood cell count [Unknown]
